FAERS Safety Report 8032907-0 (Version None)
Quarter: 2012Q1

REPORT INFORMATION
  Report Type: 
  Country: None (occurrence: None)
  Receive Date: 20120110
  Receipt Date: 20111228
  Transmission Date: 20120608
  Serious: Yes (Hospitalization)
  Sender: FDA-Public Use
  Company Number: US-ELI_LILLY_AND_COMPANY-US201108001140

PATIENT
  Sex: Female
  Weight: 47.619 kg

DRUGS (21)
  1. FORTEO [Suspect]
     Dosage: 20 UG, QD
     Route: 065
  2. FORTEO [Suspect]
     Dosage: 20 UG, QD
     Route: 065
  3. FORTEO [Suspect]
     Indication: OSTEOPOROSIS
     Dosage: 20 UG, QD
     Dates: end: 20110717
  4. FORTEO [Suspect]
     Dosage: 20 UG, QD
  5. CYMBALTA [Concomitant]
     Indication: DEPRESSION
     Dosage: 60 MG, QD
  6. AMBIEN [Concomitant]
  7. FORTEO [Suspect]
     Dosage: 20 UG, QD
  8. LYRICA [Concomitant]
     Dosage: UNK, BID
  9. LIPITOR [Concomitant]
     Dosage: 40 MG, QD
  10. KEPPRA [Concomitant]
  11. FORTEO [Suspect]
     Dosage: 20 UG, QD
  12. SYNTHROID [Concomitant]
     Indication: THYROID DISORDER
     Dosage: 0.05 MG, QD
  13. METHADONE HCL [Concomitant]
  14. ASPIRIN [Concomitant]
     Dosage: UNK, QD
  15. MULTI-VITAMINS [Concomitant]
  16. POTASSIUM CHLORIDE [Concomitant]
  17. COPAXONE [Concomitant]
     Indication: MULTIPLE SCLEROSIS
     Dosage: 20 MG, QD
  18. XANAX [Concomitant]
     Indication: ANXIETY
     Dosage: 1 MG, 4 TIMES DAILY
  19. LEVOTHYROXINE SODIUM [Concomitant]
     Indication: THYROID DISORDER
     Dosage: UNK UNK, QD
  20. VITAMIN D [Concomitant]
     Dosage: 50000 IU, WEEKLY (1/W)
  21. HYDROMORPHONE HYDROCHLORIDE [Concomitant]
     Indication: PAIN

REACTIONS (17)
  - MULTIPLE SCLEROSIS RELAPSE [None]
  - FATIGUE [None]
  - DYSPNOEA [None]
  - NAUSEA [None]
  - DYSKINESIA [None]
  - JAW DISORDER [None]
  - DRUG DOSE OMISSION [None]
  - VISUAL IMPAIRMENT [None]
  - CYSTITIS [None]
  - CONTUSION [None]
  - DEHYDRATION [None]
  - MEMORY IMPAIRMENT [None]
  - MALAISE [None]
  - SLEEP DISORDER [None]
  - DECREASED APPETITE [None]
  - ASTHENIA [None]
  - CONFUSIONAL STATE [None]
